FAERS Safety Report 13190847 (Version 1)
Quarter: 2017Q1

REPORT INFORMATION
  Report Type: Spontaneous
  Country: US (occurrence: US)
  Receive Date: 20170206
  Receipt Date: 20170206
  Transmission Date: 20170428
  Serious: No
  Sender: FDA-Public Use
  Company Number: US-TAIHO ONCOLOGY INC-EU-2017-00169

PATIENT
  Sex: Female

DRUGS (11)
  1. LONSURF [Suspect]
     Active Substance: TIPIRACIL HYDROCHLORIDE\TRIFLURIDINE
     Indication: RECTAL CANCER
     Route: 048
     Dates: start: 20161230
  2. ZYRTEC [Concomitant]
     Active Substance: CETIRIZINE HYDROCHLORIDE
     Dosage: NI
  3. VITAMIN D3 [Concomitant]
     Active Substance: CHOLECALCIFEROL
     Dosage: NI
  4. CALCIUM [Concomitant]
     Active Substance: CALCIUM
     Dosage: NI
  5. MAGNESIUM [Concomitant]
     Active Substance: MAGNESIUM
     Dosage: NI
  6. CLORAZEPATE DIPOTASSIUM. [Concomitant]
     Active Substance: CLORAZEPATE DIPOTASSIUM
     Dosage: NI
  7. FLUOXETINE HYDROCHLORIDE. [Concomitant]
     Active Substance: FLUOXETINE HYDROCHLORIDE
     Dosage: NI
  8. FOLIC ACID. [Concomitant]
     Active Substance: FOLIC ACID
     Dosage: NI
  9. LORAZEPAM. [Concomitant]
     Active Substance: LORAZEPAM
     Dosage: NI
  10. GABAPENTIN. [Concomitant]
     Active Substance: GABAPENTIN
     Dosage: NI
  11. MORPHINE SULFATE. [Concomitant]
     Active Substance: MORPHINE SULFATE
     Dosage: NI

REACTIONS (5)
  - Decreased appetite [Unknown]
  - Fatigue [Unknown]
  - Diarrhoea [Unknown]
  - Nausea [Unknown]
  - Vomiting [Unknown]
